FAERS Safety Report 25779499 (Version 3)
Quarter: 2025Q3

REPORT INFORMATION
  Report Type: Spontaneous
  Country: CN (occurrence: CN)
  Receive Date: 20250909
  Receipt Date: 20250917
  Transmission Date: 20251020
  Serious: Yes (Death)
  Sender: BOEHRINGER INGELHEIM
  Company Number: CN-BoehringerIngelheim-2025-BI-092079

PATIENT
  Sex: Female

DRUGS (1)
  1. LINAGLIPTIN [Suspect]
     Active Substance: LINAGLIPTIN
     Indication: Diabetes mellitus

REACTIONS (2)
  - Death [Fatal]
  - Generalised oedema [Unknown]

NARRATIVE: CASE EVENT DATE: 20240101
